FAERS Safety Report 8815586 (Version 1)
Quarter: 2012Q4

REPORT INFORMATION
  Report Type: 
  Country: US (occurrence: US)
  Receive Date: 20120928
  Receipt Date: 20120928
  Transmission Date: 20130627
  Serious: Yes (Death, Hospitalization)
  Sender: FDA-Public Use
  Company Number: US-PURDUE-USA-2012-0093648

PATIENT
  Age: 68 None
  Sex: Male
  Weight: 68.03 kg

DRUGS (1)
  1. OXYCONTIN (NDA 22-272) [Suspect]
     Indication: PAIN
     Dosage: 480 mg, daily
     Route: 048

REACTIONS (2)
  - Completed suicide [Fatal]
  - Hospitalisation [Unknown]
